FAERS Safety Report 23034246 (Version 3)
Quarter: 2023Q4

REPORT INFORMATION
  Report Type: Spontaneous
  Country: None (occurrence: CA)
  Receive Date: 20231005
  Receipt Date: 20231204
  Transmission Date: 20240109
  Serious: Yes (Death, Hospitalization)
  Sender: FDA-Public Use
  Company Number: CA-Harrow Eye-2146748

PATIENT
  Age: 52 Year
  Sex: Male

DRUGS (29)
  1. VIGAMOX [Suspect]
     Active Substance: MOXIFLOXACIN HYDROCHLORIDE
     Indication: Product used for unknown indication
  2. AMLODIPINE BESYLATE [Suspect]
     Active Substance: AMLODIPINE BESYLATE
  3. MOMETASONE FUROATE [Suspect]
     Active Substance: MOMETASONE FUROATE
  4. RITUXIMAB [Suspect]
     Active Substance: RITUXIMAB
  5. RITUXIMAB [Suspect]
     Active Substance: RITUXIMAB
     Route: 041
  6. OLOPATADINE [Suspect]
     Active Substance: OLOPATADINE
  7. PREDNISONE [Suspect]
     Active Substance: PREDNISONE
  8. BENDAMUSTINE HYDROCHLORIDE [Suspect]
     Active Substance: BENDAMUSTINE HYDROCHLORIDE
     Route: 042
  9. BESIFLOXACIN [Suspect]
     Active Substance: BESIFLOXACIN
  10. BETAXOLOL [Suspect]
     Active Substance: BETAXOLOL
  11. CHLORAMBUCIL [Suspect]
     Active Substance: CHLORAMBUCIL
  12. CIALIS [Suspect]
     Active Substance: TADALAFIL
  13. CYCLOPHOSPHAMIDE [Suspect]
     Active Substance: CYCLOPHOSPHAMIDE
     Route: 042
  14. DOXORUBICIN [Suspect]
     Active Substance: DOXORUBICIN
  15. EPINEPHRINE [Suspect]
     Active Substance: EPINEPHRINE
     Route: 030
  16. FLUDARABINE PHOSPHATE [Suspect]
     Active Substance: FLUDARABINE PHOSPHATE
     Route: 042
  17. OBINUTUZUMAB [Suspect]
     Active Substance: OBINUTUZUMAB
     Route: 042
  18. PREDNISOLONE [Suspect]
     Active Substance: PREDNISOLONE
  19. PREDNISOLONE SODIUM PHOSPHATE [Suspect]
     Active Substance: PREDNISOLONE SODIUM PHOSPHATE
  20. PREDNISONE ACETATE [Suspect]
     Active Substance: PREDNISONE ACETATE
  21. CYCLOPHOSPHAMIDE [Suspect]
     Active Substance: CYCLOPHOSPHAMIDE
  22. VINCRISTINE [Suspect]
     Active Substance: VINCRISTINE
  23. VINCRISTINE SULFATE [Suspect]
     Active Substance: VINCRISTINE SULFATE
  24. EPIRUBICIN HYDROCHLORIDE [Suspect]
     Active Substance: EPIRUBICIN HYDROCHLORIDE
     Route: 042
  25. VINCRISTINE SULFATE [Suspect]
     Active Substance: VINCRISTINE SULFATE
  26. BETAXOLOL HYDROCHLORIDE [Suspect]
     Active Substance: BETAXOLOL HYDROCHLORIDE
  27. DOXORUBICIN HYDROCHLORIDE [Suspect]
     Active Substance: DOXORUBICIN HYDROCHLORIDE
  28. OLOPATADINE HYDROCHLORIDE [Suspect]
     Active Substance: OLOPATADINE HYDROCHLORIDE
  29. PREDNISOLONE [Suspect]
     Active Substance: PREDNISOLONE

REACTIONS (2)
  - Cardiac disorder [Fatal]
  - Hypersensitivity [Fatal]
